FAERS Safety Report 23623946 (Version 1)
Quarter: 2024Q1

REPORT INFORMATION
  Report Type: Spontaneous
  Country: DE (occurrence: DE)
  Receive Date: 20240312
  Receipt Date: 20240312
  Transmission Date: 20240409
  Serious: Yes (Other)
  Sender: FDA-Public Use
  Company Number: DE-SANDOZ-SDZ2024DE026675

PATIENT
  Age: 40 Year
  Sex: Female

DRUGS (1)
  1. TERIFLUNOMIDE [Suspect]
     Active Substance: TERIFLUNOMIDE
     Indication: Multiple sclerosis
     Dosage: UNK
     Route: 065
     Dates: start: 2016

REACTIONS (6)
  - Colitis ulcerative [Unknown]
  - Impaired healing [Unknown]
  - Faecal calprotectin increased [Unknown]
  - Abscess limb [Unknown]
  - Hepatic enzyme increased [Unknown]
  - Skin reaction [Unknown]

NARRATIVE: CASE EVENT DATE: 20230101
